FAERS Safety Report 7621750-X (Version None)
Quarter: 2011Q3

REPORT INFORMATION
  Report Type: 
  Country: None (occurrence: None)
  Receive Date: 20110719
  Receipt Date: 20110713
  Transmission Date: 20111222
  Serious: Yes (Death)
  Sender: FDA-Public Use
  Company Number: US-AMGEN-USASP2011035929

PATIENT
  Age: 88 Year
  Sex: Male

DRUGS (2)
  1. IVIGLOB-EX [Concomitant]
  2. NPLATE [Suspect]
     Indication: IDIOPATHIC THROMBOCYTOPENIC PURPURA
     Dates: start: 20100608, end: 20110125

REACTIONS (1)
  - DEATH [None]
